FAERS Safety Report 18015466 (Version 4)
Quarter: 2020Q3

REPORT INFORMATION
  Report Type: Report from Study
  Country: AU (occurrence: AU)
  Receive Date: 20200713
  Receipt Date: 20200824
  Transmission Date: 20201103
  Serious: Yes (Hospitalization)
  Sender: FDA-Public Use
  Company Number: AU-JNJFOC-20200620258

PATIENT
  Age: 51 Year
  Sex: Male

DRUGS (9)
  1. PANADEINE                          /00116401/ [Concomitant]
     Active Substance: ACETAMINOPHEN\CODEINE PHOSPHATE
  2. STELARA [Suspect]
     Active Substance: USTEKINUMAB
     Route: 058
  3. STELARA [Suspect]
     Active Substance: USTEKINUMAB
     Indication: CROHN^S DISEASE
     Route: 042
     Dates: start: 20200612
  4. PANADOL [Concomitant]
     Active Substance: ACETAMINOPHEN
  5. STELARA [Suspect]
     Active Substance: USTEKINUMAB
     Route: 058
     Dates: end: 20200729
  6. PREDNISONE. [Concomitant]
     Active Substance: PREDNISONE
  7. STELARA [Suspect]
     Active Substance: USTEKINUMAB
     Route: 058
  8. ENDONE [Concomitant]
     Active Substance: OXYCODONE HYDROCHLORIDE
  9. CLONAZEPAM. [Concomitant]
     Active Substance: CLONAZEPAM

REACTIONS (5)
  - Off label use [Unknown]
  - Abscess intestinal [Not Recovered/Not Resolved]
  - Syncope [Unknown]
  - Crohn^s disease [Not Recovered/Not Resolved]
  - Product use issue [Unknown]

NARRATIVE: CASE EVENT DATE: 2020
